FAERS Safety Report 4949664-4 (Version None)
Quarter: 2006Q1

REPORT INFORMATION
  Report Type: 
  Country: None (occurrence: None)
  Receive Date: 20060316
  Receipt Date: 20060228
  Transmission Date: 20060701
  Serious: Yes (Death, Hospitalization)
  Sender: FDA-Public Use
  Company Number: PAR_0537_2006

PATIENT
  Age: 43 Year

DRUGS (3)
  1. VERAPAMIL EXTENDED-RELEASE [Suspect]
     Dosage: DF PO
     Route: 048
  2. METOPROLOL [Suspect]
     Dosage: DF PO
     Route: 048
  3. DIAZEPAM [Suspect]
     Dosage: DF PO
     Route: 048

REACTIONS (2)
  - CARDIO-RESPIRATORY ARREST [None]
  - COMPLETED SUICIDE [None]
